FAERS Safety Report 24391350 (Version 1)
Quarter: 2024Q4

REPORT INFORMATION
  Report Type: Spontaneous
  Country: US (occurrence: None)
  Receive Date: 20241002
  Receipt Date: 20241002
  Transmission Date: 20250115
  Serious: No
  Sender: Public
  Company Number: None

PATIENT
  Sex: Female

DRUGS (1)
  1. KESIMPTA [Suspect]
     Active Substance: OFATUMUMAB
     Indication: Multiple sclerosis
     Dosage: FREQUENCY : MONTHLY;?
     Route: 058
     Dates: start: 202405

REACTIONS (5)
  - Pneumonia staphylococcal [None]
  - Musculoskeletal stiffness [None]
  - Joint stiffness [None]
  - Joint stiffness [None]
  - Loss of personal independence in daily activities [None]
